FAERS Safety Report 6765463-5 (Version None)
Quarter: 2010Q2

REPORT INFORMATION
  Report Type: 
  Country: None (occurrence: None)
  Receive Date: 20100611
  Receipt Date: 20100602
  Transmission Date: 20101027
  Serious: Yes (Other)
  Sender: FDA-Public Use
  Company Number: CA-PFIZER INC-2010070004

PATIENT
  Age: 59 Year
  Sex: Female
  Weight: 68 kg

DRUGS (3)
  1. LIPITOR [Suspect]
     Dosage: 10 MG, 1X/DAY
  2. OGEN [Concomitant]
     Dosage: 0.625 MG, 1X/DAY
  3. PROMETRIUM [Concomitant]
     Dosage: 100 MG, 1X/DAY

REACTIONS (7)
  - EYELID OEDEMA [None]
  - FEELING HOT [None]
  - HYPERVENTILATION [None]
  - MYALGIA [None]
  - PRURITUS [None]
  - PYREXIA [None]
  - RASH [None]
